FAERS Safety Report 9046343 (Version 1)
Quarter: 2013Q1

REPORT INFORMATION
  Report Type: Spontaneous
  Country: US (occurrence: None)
  Receive Date: 20130128
  Receipt Date: 20130128
  Transmission Date: 20140127
  Serious: No
  Sender: FDA-Public Use
  Company Number: None

PATIENT
  Age: 89 Year
  Sex: Male
  Weight: 62.3 kg

DRUGS (1)
  1. CARBIDOPA, LEVODOPA AND ENTACAPONE [Suspect]
     Route: 048
     Dates: start: 20120721, end: 20121201

REACTIONS (3)
  - Dizziness [None]
  - Hypotension [None]
  - Fall [None]
